FAERS Safety Report 6836657-5 (Version None)
Quarter: 2010Q3

REPORT INFORMATION
  Report Type: 
  Country: None (occurrence: None)
  Receive Date: 20100708
  Receipt Date: 20100523
  Transmission Date: 20110219
  Serious: Yes (Hospitalization)
  Sender: FDA-Public Use
  Company Number: 2010002105

PATIENT
  Age: 69 Year
  Sex: Male

DRUGS (13)
  1. ERLOTINIB (ERLOTINIB) (TABLET) (ERLOTINIB) [Suspect]
     Indication: GLIOBLASTOMA
     Dosage: (150 MG, QD), ORAL
     Route: 048
     Dates: start: 20100511, end: 20100515
  2. TEMOZOLOMIDE [Suspect]
     Indication: GLIOBLASTOMA
     Dosage: (75 MG/M2)
     Dates: start: 20100510, end: 20100516
  3. ACETAMINOPHEN [Concomitant]
  4. DECADRON [Concomitant]
  5. CLONIDINE HCL [Concomitant]
  6. KEPPRA [Concomitant]
  7. ATORVASTATIN CALCIUM [Concomitant]
  8. PRILOSEC (OMEPRAZOLE) [Concomitant]
  9. TEMAZEPAM [Concomitant]
  10. LISINOPRIL [Concomitant]
  11. ALLOPURINOL [Concomitant]
  12. COLACE (DOCUSATE SODIUM) [Concomitant]
  13. THIAMINE (THIAMINE) [Concomitant]

REACTIONS (8)
  - BUNDLE BRANCH BLOCK LEFT [None]
  - CONFUSIONAL STATE [None]
  - CYSTITIS [None]
  - DEHYDRATION [None]
  - DEVICE RELATED INFECTION [None]
  - DISORIENTATION [None]
  - HYDROCEPHALUS [None]
  - URINARY TRACT INFECTION [None]
